FAERS Safety Report 14067130 (Version 5)
Quarter: 2018Q2

REPORT INFORMATION
  Report Type: Report from Study
  Country: BR (occurrence: BR)
  Receive Date: 20171009
  Receipt Date: 20180427
  Transmission Date: 20180711
  Serious: Yes (Death, Hospitalization, Other)
  Sender: FDA-Public Use
  Company Number: PHHY2015BR005923

PATIENT
  Age: 75 Year
  Sex: Female
  Weight: 53 kg

DRUGS (22)
  1. XOLAIR [Suspect]
     Active Substance: OMALIZUMAB
     Indication: ASTHMA
     Dosage: 1 DF, QMO (AMPOULE)
     Route: 058
     Dates: start: 201312
  2. AVALOX [Suspect]
     Active Substance: MOXIFLOXACIN HYDROCHLORIDE
     Indication: PRODUCT USED FOR UNKNOWN INDICATION
     Route: 065
  3. SINGULAIR [Concomitant]
     Active Substance: MONTELUKAST SODIUM
     Indication: ASTHMA
     Dosage: 10 MG, QD
     Route: 065
     Dates: start: 201308
  4. VANNAIR [Concomitant]
     Active Substance: BUDESONIDE\FORMOTEROL FUMARATE DIHYDRATE
     Indication: ASTHMA
     Dosage: 2 DF, Q8H
     Route: 065
     Dates: start: 201308
  5. VANNAIR [Concomitant]
     Active Substance: BUDESONIDE\FORMOTEROL FUMARATE DIHYDRATE
     Dosage: 6 TIMES A DAY, 5 YEARS AGO
     Route: 055
     Dates: end: 201803
  6. AMLODIPINE [Concomitant]
     Active Substance: AMLODIPINE BESYLATE
     Indication: HYPERTENSION
     Dosage: 1 DF, QD
     Route: 048
  7. GABAPENTIN. [Suspect]
     Active Substance: GABAPENTIN
     Indication: COUGH
     Dosage: 2 DF, QD
     Route: 048
  8. MESACOL [Suspect]
     Active Substance: MESALAMINE
     Indication: PROCTITIS
     Route: 054
  9. OMNARIS [Concomitant]
     Active Substance: CICLESONIDE
     Indication: RHINITIS
     Dosage: BID
     Route: 045
     Dates: start: 201308
  10. MOTILIUM [Concomitant]
     Active Substance: DOMPERIDONE
     Indication: ABDOMINAL DISCOMFORT
     Dosage: 3 DF, QD
     Route: 065
     Dates: start: 201308
  11. LEVOTHYROXINE. [Concomitant]
     Active Substance: LEVOTHYROXINE
     Indication: HORMONE REPLACEMENT THERAPY
     Dosage: 1 DF, QD, FOR MORE THAN 15 YEARS
     Route: 048
  12. HYDROCHLOROTHIAZIDE. [Concomitant]
     Active Substance: HYDROCHLOROTHIAZIDE
     Indication: HYPERTENSION
     Dosage: 0.5 DF, UNK
     Route: 048
  13. LORAZEPAM. [Concomitant]
     Active Substance: LORAZEPAM
     Indication: ANXIETY
     Dosage: 1 DF, QD
     Route: 048
  14. DOMPERIDONE [Concomitant]
     Active Substance: DOMPERIDONE
     Indication: GASTROOESOPHAGEAL REFLUX DISEASE
     Dosage: 2 DF, QD, FOR 5 YEARS AGO
     Route: 048
     Dates: end: 201803
  15. SPIRIVA [Suspect]
     Active Substance: TIOTROPIUM BROMIDE MONOHYDRATE
     Indication: ASTHMA
     Dosage: 2 DF, QD
     Route: 055
     Dates: start: 2013
  16. XOLAIR [Suspect]
     Active Substance: OMALIZUMAB
     Dosage: UNK
     Route: 065
     Dates: start: 2015, end: 201712
  17. PURAN [Concomitant]
     Active Substance: LEVOTHYROXINE SODIUM
     Indication: THYROID DISORDER
     Dosage: 1 DF, QD
     Route: 065
  18. ATORVASTATIN [Concomitant]
     Active Substance: ATORVASTATIN
     Indication: PRODUCT USED FOR UNKNOWN INDICATION
     Dosage: 0.5 DF, QD
     Route: 048
  19. XOLAIR [Suspect]
     Active Substance: OMALIZUMAB
     Dosage: 1 DF, QMO (AMPOULE)
     Route: 058
     Dates: start: 201411
  20. ESOMEPRAZOLE [Concomitant]
     Active Substance: ESOMEPRAZOLE
     Indication: ABDOMINAL DISCOMFORT
     Dosage: 2 DF, QD, 5 YEARS AGO
     Route: 048
     Dates: start: 201308, end: 201803
  21. XOLAIR [Suspect]
     Active Substance: OMALIZUMAB
     Dosage: 1 DF, QMO (AMPOULE)
     Route: 058
     Dates: start: 20141017
  22. ESOMEPRAZOLE [Concomitant]
     Active Substance: ESOMEPRAZOLE
     Indication: GASTROOESOPHAGEAL REFLUX DISEASE

REACTIONS (18)
  - Abdominal pain upper [Unknown]
  - Asphyxia [Unknown]
  - Hepatic neoplasm [Fatal]
  - Feeding disorder [Unknown]
  - Haemorrhage [Not Recovered/Not Resolved]
  - Malignant melanoma [Recovered/Resolved]
  - Confusional state [Unknown]
  - Erythema [Recovering/Resolving]
  - Peripheral swelling [Unknown]
  - Drug intolerance [Unknown]
  - Malaise [Not Recovered/Not Resolved]
  - Dyspnoea [Not Recovered/Not Resolved]
  - Cough [Recovering/Resolving]
  - Proctitis [Unknown]
  - Asthenia [Unknown]
  - Somnolence [Unknown]
  - Metastases to lung [Fatal]
  - Asthma [Recovering/Resolving]

NARRATIVE: CASE EVENT DATE: 2015
